FAERS Safety Report 5806952-7 (Version None)
Quarter: 2008Q3

REPORT INFORMATION
  Report Type: 
  Country: None (occurrence: None)
  Receive Date: 20080708
  Receipt Date: 20080703
  Transmission Date: 20090109
  Serious: Yes (Life-Threatening, Hospitalization)
  Sender: FDA-Public Use
  Company Number: 2007SP021881

PATIENT
  Age: 56 Year
  Sex: Male

DRUGS (9)
  1. REBETOL [Suspect]
     Indication: HEPATITIS C
     Dosage: 600 MG; QW; PO; 1200 MG; QW; PO; 200 MG; TIW; PO; 200 MG; BIW; PO
     Route: 048
     Dates: start: 20070201, end: 20070401
  2. REBETOL [Suspect]
     Indication: HEPATITIS C
     Dosage: 600 MG; QW; PO; 1200 MG; QW; PO; 200 MG; TIW; PO; 200 MG; BIW; PO
     Route: 048
     Dates: start: 20070401, end: 20070801
  3. REBETOL [Suspect]
     Indication: HEPATITIS C
     Dosage: 600 MG; QW; PO; 1200 MG; QW; PO; 200 MG; TIW; PO; 200 MG; BIW; PO
     Route: 048
     Dates: start: 20070801, end: 20070901
  4. REBETOL [Suspect]
     Indication: HEPATITIS C
     Dosage: 600 MG; QW; PO; 1200 MG; QW; PO; 200 MG; TIW; PO; 200 MG; BIW; PO
     Route: 048
     Dates: start: 20070901, end: 20070924
  5. PEGASYS [Suspect]
     Indication: HEPATITIS C
     Dosage: 135 MCG; QW; SC
     Route: 058
     Dates: start: 20070201, end: 20070924
  6. KARDEGIC [Concomitant]
  7. TAREG [Concomitant]
  8. CELECTOL [Concomitant]
  9. CALTRATE [Concomitant]

REACTIONS (12)
  - ANAEMIA [None]
  - ANOREXIA [None]
  - CARDIAC DISORDER [None]
  - CEREBRAL ATROPHY [None]
  - CEREBRAL DISORDER [None]
  - CEREBRAL ISCHAEMIA [None]
  - DISTURBANCE IN ATTENTION [None]
  - ERYTHROBLASTOSIS [None]
  - HAEMOLYSIS [None]
  - LUNG DISORDER [None]
  - THROMBOTIC MICROANGIOPATHY [None]
  - WEIGHT DECREASED [None]
